APPROVED DRUG PRODUCT: FAMOTIDINE PRESERVATIVE FREE
Active Ingredient: FAMOTIDINE
Strength: 10MG/ML
Dosage Form/Route: INJECTABLE;INJECTION
Application: A076324 | Product #001
Applicant: EPIC PHARMA LLC
Approved: Nov 27, 2002 | RLD: No | RS: No | Type: DISCN